FAERS Safety Report 26216449 (Version 1)
Quarter: 2025Q4

REPORT INFORMATION
  Report Type: Spontaneous
  Country: MA (occurrence: MA)
  Receive Date: 20251231
  Receipt Date: 20251231
  Transmission Date: 20260117
  Serious: Yes (Other)
  Sender: RANBAXY
  Company Number: MA-SUN PHARMACEUTICAL INDUSTRIES INC-2025R1-544055

PATIENT
  Age: 61 Year
  Sex: Male

DRUGS (5)
  1. PACLITAXEL [Suspect]
     Active Substance: PACLITAXEL
     Indication: Squamous cell carcinoma
     Dosage: 310 MILLIGRAM, FIRST CYCLE
     Route: 065
     Dates: start: 20250409
  2. PACLITAXEL [Suspect]
     Active Substance: PACLITAXEL
     Dosage: 310 MILLIGRAM, SECOND CYCLE
     Route: 065
     Dates: start: 20250502
  3. DOCETAXEL [Suspect]
     Active Substance: DOCETAXEL
     Indication: Squamous cell carcinoma
     Dosage: 133 MILLIGRAM
     Route: 065
  4. CARBOPLATIN [Concomitant]
     Active Substance: CARBOPLATIN
     Indication: Squamous cell carcinoma
     Dosage: 753 MILLIGRAM
     Route: 065
     Dates: start: 20250409
  5. CARBOPLATIN [Concomitant]
     Active Substance: CARBOPLATIN
     Dosage: 680 MILLIGRAM
     Route: 065
     Dates: start: 20250502

REACTIONS (3)
  - Anaphylactic shock [Unknown]
  - Rash maculo-papular [Unknown]
  - Rash [Unknown]
